FAERS Safety Report 15995020 (Version 1)
Quarter: 2019Q1

REPORT INFORMATION
  Report Type: Spontaneous
  Country: MX (occurrence: MX)
  Receive Date: 20190222
  Receipt Date: 20190222
  Transmission Date: 20190418
  Serious: Yes (Other)
  Sender: FDA-Public Use
  Company Number: MX-BAYER-2019-032761

PATIENT
  Age: 41 Year
  Sex: Female

DRUGS (2)
  1. MOXIFLOXACIN ORAL [Suspect]
     Active Substance: MOXIFLOXACIN
  2. PREDNISONE. [Concomitant]
     Active Substance: PREDNISONE

REACTIONS (5)
  - Tuberculoma of central nervous system [Recovering/Resolving]
  - Product use in unapproved indication [None]
  - Paradoxical drug reaction [None]
  - Drug ineffective for unapproved indication [None]
  - Off label use [None]
